FAERS Safety Report 26046084 (Version 2)
Quarter: 2025Q4

REPORT INFORMATION
  Report Type: Spontaneous
  Country: EU (occurrence: EU)
  Receive Date: 20251114
  Receipt Date: 20251206
  Transmission Date: 20260118
  Serious: Yes (Other)
  Sender: ACCORD
  Company Number: EU-Accord-512965

PATIENT
  Age: 84 Year
  Sex: Female

DRUGS (4)
  1. METHOTREXATE [Suspect]
     Active Substance: METHOTREXATE
     Indication: Intestinal T-cell lymphoma recurrent
     Dosage: INTRAVITREAL USE
  2. TEMOZOLOMIDE [Concomitant]
     Active Substance: TEMOZOLOMIDE
     Indication: Intestinal T-cell lymphoma recurrent
     Route: 048
  3. TEMOZOLOMIDE [Concomitant]
     Active Substance: TEMOZOLOMIDE
     Indication: Ocular melanoma
  4. METHOTREXATE [Suspect]
     Active Substance: METHOTREXATE
     Indication: Ocular lymphoma
     Dosage: INTRAVITREAL USE

REACTIONS (3)
  - Keratitis [Unknown]
  - Off label use [Unknown]
  - Corneal toxicity [Unknown]
